FAERS Safety Report 22960555 (Version 2)
Quarter: 2024Q1

REPORT INFORMATION
  Report Type: Report from Study
  Country: US (occurrence: US)
  Receive Date: 20230920
  Receipt Date: 20240205
  Transmission Date: 20240409
  Serious: Yes (Hospitalization, Other)
  Sender: FDA-Public Use
  Company Number: US-SANDOZ-SDZ2023US015365

PATIENT
  Age: 73 Year
  Sex: Female
  Weight: 56.689 kg

DRUGS (5)
  1. ORENITRAM [Suspect]
     Active Substance: TREPROSTINIL
     Indication: Product used for unknown indication
     Dosage: UNK
     Route: 065
  2. TREPROSTINIL [Suspect]
     Active Substance: TREPROSTINIL
     Dosage: 46 NG/KG/ MIN
     Route: 042
     Dates: start: 20230830
  3. TREPROSTINIL [Suspect]
     Active Substance: TREPROSTINIL
     Indication: Pulmonary arterial hypertension
     Dosage: 45 NG/KG/ MIN
     Route: 042
     Dates: start: 20190422
  4. TREPROSTINIL [Suspect]
     Active Substance: TREPROSTINIL
     Dosage: 46 NG/KG/ MI N
     Route: 042
     Dates: start: 20230830
  5. TADALAFIL [Concomitant]
     Active Substance: TADALAFIL
     Indication: Product used for unknown indication
     Dosage: UNK
     Route: 065

REACTIONS (12)
  - Fluid retention [Unknown]
  - Eating disorder [Unknown]
  - Chills [Unknown]
  - Pain [Unknown]
  - Headache [Unknown]
  - Nausea [Unknown]
  - Diarrhoea [Unknown]
  - Vomiting [Unknown]
  - Ovarian cystectomy [Unknown]
  - Fatigue [Unknown]
  - Asthenia [Unknown]
  - Palpitations [Unknown]

NARRATIVE: CASE EVENT DATE: 20240129
